FAERS Safety Report 16992553 (Version 1)
Quarter: 2019Q4

REPORT INFORMATION
  Report Type: Spontaneous
  Country: US (occurrence: US)
  Receive Date: 20190923
  Receipt Date: 20190923
  Transmission Date: 20200122
  Serious: No
  Sender: FDA-Public Use
  Company Number: None

PATIENT
  Age: 63 Year
  Weight: 103.87 kg

DRUGS (1)
  1. GENERIC LYRICA 200MG [Suspect]
     Active Substance: PREGABALIN
     Indication: FIBROMYALGIA
     Route: 048

REACTIONS (3)
  - Diarrhoea [None]
  - Abdominal pain upper [None]
  - Gastric ulcer [None]

NARRATIVE: CASE EVENT DATE: 20190330
